FAERS Safety Report 19210661 (Version 6)
Quarter: 2021Q3

REPORT INFORMATION
  Report Type: Report from Study
  Country: CA (occurrence: CA)
  Receive Date: 20210504
  Receipt Date: 20210908
  Transmission Date: 20211014
  Serious: Yes (Other)
  Sender: FDA-Public Use
  Company Number: CA-JNJFOC-20210438488

PATIENT
  Age: 67 Year
  Sex: Female
  Weight: 71 kg

DRUGS (4)
  1. REMICADE [Suspect]
     Active Substance: INFLIXIMAB
     Indication: CROHN^S DISEASE
     Route: 042
     Dates: start: 20191105
  2. REMICADE [Suspect]
     Active Substance: INFLIXIMAB
     Dosage: WEEK 0,2,6 THEN 600 MG Q 6 WEEKS
     Route: 042
  3. REMICADE [Suspect]
     Active Substance: INFLIXIMAB
     Dosage: ON 26?APR?2021, THE PATIENT RECEIVED12TH INFLIXIMAB INFUSION FOR DOSE OF 400 MG
     Route: 042
  4. REMICADE [Suspect]
     Active Substance: INFLIXIMAB
     Route: 042

REACTIONS (7)
  - Crohn^s disease [Recovered/Resolved]
  - Genital herpes [Recovered/Resolved]
  - Off label use [Unknown]
  - Gastric hypomotility [Recovering/Resolving]
  - Pain [Unknown]
  - Gastrooesophageal reflux disease [Recovering/Resolving]
  - Product use issue [Unknown]

NARRATIVE: CASE EVENT DATE: 202104
